FAERS Safety Report 17274017 (Version 1)
Quarter: 2020Q1

REPORT INFORMATION
  Report Type: Spontaneous
  Country: US (occurrence: US)
  Receive Date: 20191226
  Receipt Date: 20191226
  Transmission Date: 20200409
  Serious: No
  Sender: FDA-Public Use
  Company Number: None

PATIENT
  Sex: Female

DRUGS (1)
  1. HYQVIA [Suspect]
     Active Substance: HUMAN IMMUNOGLOBULIN G\HYALURONIDASE RECOMBINANT HUMAN
     Indication: IMMUNODEFICIENCY
     Dosage: ?          OTHER STRENGTH:20GM/200ML;OTHER FREQUENCY:EVERY 4 WEEKS;?
     Route: 058
     Dates: start: 20190408

REACTIONS (2)
  - Headache [None]
  - Pneumonia [None]
